FAERS Safety Report 6208443-0 (Version None)
Quarter: 2009Q2

REPORT INFORMATION
  Report Type: 
  Country: None (occurrence: None)
  Receive Date: 20090529
  Receipt Date: 20090519
  Transmission Date: 20091009
  Serious: Yes (Other)
  Sender: FDA-Public Use
  Company Number: US-ELI_LILLY_AND_COMPANY-US200905003904

PATIENT
  Age: 46 Year
  Sex: Female

DRUGS (5)
  1. CYMBALTA [Suspect]
     Indication: DEPRESSION
     Dosage: 60 MG, UNK
  2. CYMBALTA [Suspect]
     Dosage: 60 MG, UNK
     Dates: start: 20081201
  3. THYROID TAB [Concomitant]
  4. ASPIRIN [Concomitant]
     Dosage: 81 MG, UNK
  5. ALBUTEROL [Concomitant]
     Route: 055

REACTIONS (13)
  - ANXIETY [None]
  - BURNING SENSATION [None]
  - CARDIOMEGALY [None]
  - DISSOCIATION [None]
  - DRY MOUTH [None]
  - FATIGUE [None]
  - HEADACHE [None]
  - LIVER DISORDER [None]
  - LIVER FUNCTION TEST ABNORMAL [None]
  - NAUSEA [None]
  - NYSTAGMUS [None]
  - PALPITATIONS [None]
  - PANIC ATTACK [None]
